FAERS Safety Report 7829767-7 (Version None)
Quarter: 2011Q4

REPORT INFORMATION
  Report Type: 
  Country: None (occurrence: None)
  Receive Date: 20111020
  Receipt Date: 20111020
  Transmission Date: 20120403
  Serious: Yes (Hospitalization)
  Sender: FDA-Public Use
  Company Number: None

PATIENT
  Age: 31 Year
  Sex: Female
  Weight: 82.5547 kg

DRUGS (1)
  1. BEYAZ [Suspect]
     Indication: CONTRACEPTION
     Dosage: 3MG QD BY MOUTH
     Route: 048
     Dates: start: 20110401, end: 20110601

REACTIONS (1)
  - DEEP VEIN THROMBOSIS [None]
